FAERS Safety Report 10176468 (Version 2)
Quarter: 2014Q2

REPORT INFORMATION
  Report Type: Spontaneous
  Country: JP (occurrence: JP)
  Receive Date: 20140516
  Receipt Date: 20140516
  Transmission Date: 20141212
  Serious: Yes (Other)
  Sender: FDA-Public Use
  Company Number: JP-PFIZER INC-2014105474

PATIENT
  Age: 14 Year
  Sex: Female
  Weight: 44.1 kg

DRUGS (1)
  1. GENOTROPIN TC [Suspect]
     Indication: GROWTH HORMONE DEFICIENCY
     Dosage: 0.4 MG, 1X/DAY
     Route: 058
     Dates: start: 20061111

REACTIONS (2)
  - Scoliosis [Not Recovered/Not Resolved]
  - Syringomyelia [Not Recovered/Not Resolved]
